FAERS Safety Report 9940709 (Version 1)
Quarter: 2014Q1

REPORT INFORMATION
  Report Type: Spontaneous
  Country: FR (occurrence: FR)
  Receive Date: 20140303
  Receipt Date: 20140303
  Transmission Date: 20141002
  Serious: Yes (Hospitalization)
  Sender: FDA-Public Use
  Company Number: FR-NOVOPROD-401107

PATIENT
  Age: 79 Year
  Sex: Male

DRUGS (7)
  1. NOVONORM [Suspect]
     Indication: TYPE 2 DIABETES MELLITUS
     Dosage: 1.5 MG, QD (0.5 MG, 3 DF DAILY)
     Route: 048
     Dates: end: 20131213
  2. CRESTOR [Concomitant]
     Dosage: 5 MG, QD (1 DF DAILY)
  3. INEXIUM                            /01479302/ [Concomitant]
     Dosage: 20 MG, QD (1 DF DAILY)
  4. ASPEGIC                            /00002703/ [Concomitant]
     Dosage: 100 MG, QD (1 DF DAILY)
  5. COVERSYL                           /00790702/ [Concomitant]
     Dosage: 5 MG, QD (1 DF DAILY)
  6. LOPERAMIDE [Concomitant]
     Dosage: 6 DF, QD (6 TABLETS DAILY)
  7. XELODA [Concomitant]
     Dosage: UNK
     Dates: end: 201311

REACTIONS (2)
  - Hypoglycaemia [Recovered/Resolved]
  - Malaise [Recovered/Resolved]
